FAERS Safety Report 24281523 (Version 3)
Quarter: 2024Q3

REPORT INFORMATION
  Report Type: Spontaneous
  Country: PT (occurrence: PT)
  Receive Date: 20240904
  Receipt Date: 20240923
  Transmission Date: 20241016
  Serious: Yes (Hospitalization, Other)
  Sender: SANOFI AVENTIS
  Company Number: PT-MLMSERVICE-20240826-PI171523-00158-1

PATIENT
  Age: 47 Year
  Sex: Female

DRUGS (10)
  1. OXALIPLATIN [Suspect]
     Active Substance: OXALIPLATIN
     Indication: Ductal adenocarcinoma of pancreas
     Dosage: 85 MG/M2, QCY
     Route: 042
     Dates: start: 20221227, end: 20221227
  2. OXALIPLATIN [Suspect]
     Active Substance: OXALIPLATIN
     Dosage: 125 MG, QCY (FIRST DAY OF THE FIRST CYCLE OF CHEMOTHERAPY; 85 MG/M2, 125 MG IN 250 ML OF 5% GLUCOSE;
     Route: 042
     Dates: start: 20221227, end: 20221227
  3. IRINOTECAN [Suspect]
     Active Substance: IRINOTECAN
     Indication: Ductal adenocarcinoma of pancreas
     Dosage: 150 MG/M2, QCY
     Route: 042
     Dates: start: 20221227, end: 20221227
  4. IRINOTECAN [Suspect]
     Active Substance: IRINOTECAN
     Dosage: 220.5 MG, QCY(FIRST DAY OF THE FIRST CYCLE OF CHEMOTHERAPY; 150 MG/M2, 220.5 MG IN 250 ML NACL 0.9%;
     Route: 042
     Dates: start: 20221227, end: 20221227
  5. FLUOROURACIL [Suspect]
     Active Substance: FLUOROURACIL
     Indication: Ductal adenocarcinoma of pancreas
     Dosage: 2400 MG/M2, QCY
     Route: 041
     Dates: start: 20221227, end: 20221228
  6. FLUOROURACIL [Suspect]
     Active Substance: FLUOROURACIL
     Dosage: 3528 MG, QCY (FIRST DAY OF THE FIRST CYCLE OF CHEMOTHERAPY,  2400 MG/M2, INFUSION IMPLANTOFIX FOR 46
     Route: 041
     Dates: start: 20221227, end: 20221228
  7. LEVOLEUCOVORIN DISODIUM [Suspect]
     Active Substance: LEVOLEUCOVORIN DISODIUM
     Indication: Ductal adenocarcinoma of pancreas
     Dosage: 295 MG, QCY ( FIRST DAY OF THE FIRST CYCLE OF CHEMOTHERAPY IN 250 ML;ONE DOSAGE (ONCE))
     Route: 042
     Dates: start: 20221227, end: 20221227
  8. DEXTROSE [Concomitant]
     Active Substance: DEXTROSE\DEXTROSE MONOHYDRATE
     Indication: Ductal adenocarcinoma of pancreas
     Dosage: 250 ML, QCY (FIRST DAY OF THE FIRST CYCLE OF CHEMOTHERAPY; 85 MG/M2, 125 MG IN 250 ML OF 5% GLUCOSE;
     Route: 042
     Dates: start: 20221227, end: 20221227
  9. SODIUM CHLORIDE [Concomitant]
     Active Substance: SODIUM CHLORIDE
     Indication: Ductal adenocarcinoma of pancreas
     Dosage: 25 ML, QCY (FIRST DAY OF THE FIRST CYCLE OF CHEMOTHERAPY,  2400 MG/M2, INFUSION IMPLANTOFIX FOR 46 H
     Route: 041
     Dates: start: 20221227, end: 20221228
  10. SODIUM CHLORIDE [Concomitant]
     Active Substance: SODIUM CHLORIDE
     Dosage: 250 ML, QCY(FIRST DAY OF THE FIRST CYCLE OF CHEMOTHERAPY; 150 MG/M2, 220.5 MG IN 250 ML NACL 0.9%; O
     Route: 042
     Dates: start: 20221227, end: 20221227

REACTIONS (13)
  - Cytotoxic lesions of corpus callosum [Recovered/Resolved]
  - Dizziness [Recovered/Resolved]
  - Nausea [Recovered/Resolved]
  - Vomiting [Recovered/Resolved]
  - Diarrhoea [Recovered/Resolved]
  - Lymphopenia [Recovered/Resolved]
  - Monocytopenia [Recovered/Resolved]
  - Hypokalaemia [Recovered/Resolved]
  - Cell death [Recovered/Resolved]
  - Hypokalaemia [Recovered/Resolved]
  - Ophthalmoplegia [Recovered/Resolved]
  - Strabismus [Recovered/Resolved]
  - Blindness [Recovered/Resolved]

NARRATIVE: CASE EVENT DATE: 20221229
